FAERS Safety Report 11340428 (Version 1)
Quarter: 2015Q3

REPORT INFORMATION
  Report Type: Spontaneous
  Country: US (occurrence: None)
  Receive Date: 20150803
  Receipt Date: 20150803
  Transmission Date: 20151125
  Serious: Yes (Hospitalization)
  Sender: FDA-Public Use
  Company Number: NSR_02182_2015

PATIENT
  Age: 48 Year
  Sex: Male

DRUGS (1)
  1. BACLOFEN 10 MG TABLETS [Suspect]
     Active Substance: BACLOFEN
     Indication: ALCOHOL WITHDRAWAL SYNDROME
     Route: 048

REACTIONS (8)
  - Paralysis [None]
  - Condition aggravated [None]
  - Unresponsive to stimuli [None]
  - Encephalopathy [None]
  - Haemodialysis [None]
  - Mental status changes [None]
  - Apnoea [None]
  - Toxicity to various agents [None]
